FAERS Safety Report 15181077 (Version 7)
Quarter: 2019Q1

REPORT INFORMATION
  Report Type: Spontaneous
  Country: FR (occurrence: FR)
  Receive Date: 20180723
  Receipt Date: 20190301
  Transmission Date: 20190417
  Serious: Yes (Death, Hospitalization, Other)
  Sender: FDA-Public Use
  Company Number: FR-MYLANLABS-2018M1053787

PATIENT
  Age: 39 Year
  Sex: Female

DRUGS (14)
  1. MITOXANTRONE [Suspect]
     Active Substance: MITOXANTRONE HYDROCHLORIDE
     Indication: BREAST CANCER FEMALE
     Dosage: UNK
     Dates: start: 1993
  2. EPIRUBICIN [Suspect]
     Active Substance: EPIRUBICIN
     Indication: BREAST CANCER
     Dosage: 100 MILLIGRAM/SQ. METER, CYCLE, (100 MG/M2, CYCLIC (6 CYCLES) )
     Route: 065
  3. IDARUBICIN [Suspect]
     Active Substance: IDARUBICIN
     Indication: ACUTE MYELOID LEUKAEMIA
     Dosage: 8 MILLIGRAM/SQ. METER, CYCLE, (8 MG/M2, CYCLIC (2+4) )
     Route: 065
  4. VINCRISTINE SULFATE. [Suspect]
     Active Substance: VINCRISTINE SULFATE
     Indication: BREAST CANCER FEMALE
     Dosage: UNK
     Dates: start: 1993
  5. CICLOSPORIN [Suspect]
     Active Substance: CYCLOSPORINE
     Indication: PROPHYLAXIS AGAINST GRAFT VERSUS HOST DISEASE
     Route: 042
  6. ARACYTINE [Concomitant]
     Active Substance: CYTARABINE
     Dosage: 200 MILLIGRAM/SQ. METER, CYCLE, (200 MG/M2, CYCLIC (5+7)
     Dates: start: 200801
  7. IDARUBICIN [Suspect]
     Active Substance: IDARUBICIN
     Dosage: 8 MILLIGRAM/SQ. METER, CYCLE, (8 MG/M2, CYCLIC (5+7)
     Route: 065
     Dates: start: 200801
  8. ARACYTINE [Concomitant]
     Active Substance: CYTARABINE
     Indication: ACUTE MYELOID LEUKAEMIA
     Dosage: 2000 MILLIGRAM/SQ. METER, CYCLE, (2000 MG/M2, CYCLIC (2+4) )
     Route: 065
  9. FLUDARABINE [Concomitant]
     Active Substance: FLUDARABINE PHOSPHATE
     Indication: PRODUCT USED FOR UNKNOWN INDICATION
     Dosage: 25 MILLIGRAM/SQ. METER
     Route: 065
  10. MYCOPHENOLATE MOFETIL. [Suspect]
     Active Substance: MYCOPHENOLATE MOFETIL
     Indication: PROPHYLAXIS AGAINST GRAFT VERSUS HOST DISEASE
     Dosage: UNK
     Route: 065
  11. FLUOROURACIL. [Suspect]
     Active Substance: FLUOROURACIL
     Indication: BREAST CANCER FEMALE
     Dosage: 500 MILLIGRAM/SQ. METER, CYCLE, (500 MG/M2, CYCLIC (6 CYCLES)
     Route: 065
     Dates: start: 1993
  12. CYCLOPHOSPHAMIDE. [Suspect]
     Active Substance: CYCLOPHOSPHAMIDE
     Indication: BREAST CANCER FEMALE
     Dosage: 500 MILLIGRAM, CYCLE, (500 MG/M2, CYCLIC (6 CYCLES)
     Dates: start: 1993
  13. CYCLOPHOSPHAMIDE. [Suspect]
     Active Substance: CYCLOPHOSPHAMIDE
     Dosage: 60 MILLIGRAM/KILOGRAM (D-5 AND D-4)
     Route: 065
  14. TAMOXIFEN [Suspect]
     Active Substance: TAMOXIFEN
     Indication: BREAST CANCER FEMALE
     Dosage: UNK
     Route: 048
     Dates: start: 1993

REACTIONS (19)
  - Cardiotoxicity [Unknown]
  - Chest pain [Unknown]
  - Multiple organ dysfunction syndrome [Fatal]
  - Right ventricular enlargement [Unknown]
  - Liver disorder [Unknown]
  - Pneumonia [Unknown]
  - Acute myeloid leukaemia [Recovered/Resolved]
  - Human herpesvirus 6 infection [Unknown]
  - Malignant pleural effusion [Unknown]
  - Tachycardia [Unknown]
  - Tricuspid valve incompetence [Unknown]
  - Pericardial effusion [Unknown]
  - Pyrexia [Unknown]
  - Second primary malignancy [Recovered/Resolved]
  - Depressed level of consciousness [Unknown]
  - Product use in unapproved indication [Unknown]
  - Graft versus host disease in gastrointestinal tract [Unknown]
  - Ejection fraction decreased [Unknown]
  - Generalised oedema [Unknown]

NARRATIVE: CASE EVENT DATE: 1993
